FAERS Safety Report 7331457-4 (Version None)
Quarter: 2011Q1

REPORT INFORMATION
  Report Type: 
  Country: None (occurrence: None)
  Receive Date: 20110228
  Receipt Date: 20110228
  Transmission Date: 20110831
  Serious: Yes (Disabling, Other)
  Sender: FDA-Public Use
  Company Number: None

PATIENT

DRUGS (1)
  1. FOSAMAX [Suspect]
     Indication: OSTEOPOROSIS
     Dosage: 1 A WEEK
     Dates: start: 20060101, end: 20090101

REACTIONS (3)
  - LOOSE TOOTH [None]
  - OSTEONECROSIS OF JAW [None]
  - TOOTH ABSCESS [None]
